FAERS Safety Report 7653528-5 (Version None)
Quarter: 2011Q3

REPORT INFORMATION
  Report Type: 
  Country: None (occurrence: None)
  Receive Date: 20110803
  Receipt Date: 20110726
  Transmission Date: 20111222
  Serious: Yes (Hospitalization, Other)
  Sender: FDA-Public Use
  Company Number: US-BAYER-200934518NA

PATIENT
  Age: 71 Year
  Sex: Male
  Weight: 77 kg

DRUGS (25)
  1. TRASYLOL [Suspect]
     Indication: CORONARY ARTERY BYPASS
     Dosage: UNK
     Route: 042
     Dates: start: 20040927, end: 20040927
  2. AEROBID [Concomitant]
  3. FLONASE [Concomitant]
  4. OMNIPAQUE 140 [Concomitant]
     Dosage: 350 UNK
     Dates: start: 20040924
  5. OMEGA 3 FATTY ACIDS [Concomitant]
     Dosage: UNK UNK, QD
     Route: 048
  6. LORATADINE [Concomitant]
     Dosage: 10 MG, UNK
     Route: 048
  7. TRUSOPT [Concomitant]
     Route: 047
  8. ANCEF [Concomitant]
     Dosage: 1 G, UNK
     Route: 042
     Dates: start: 20040927, end: 20040927
  9. POTASSIUM CHLORIDE [Concomitant]
  10. TRASYLOL [Suspect]
     Indication: AORTIC VALVE REPLACEMENT
  11. SEREVENT [Concomitant]
  12. LASIX [Concomitant]
  13. VISIPAQUE [Concomitant]
     Dosage: 320 UNK
     Dates: start: 20040924
  14. PROCARDIA [Concomitant]
     Dosage: 80 MG, QD
     Route: 048
  15. ACIPHEX [Concomitant]
     Dosage: 20 MG, QD
  16. ACETYLSALICYLIC ACID SRT [Concomitant]
     Dosage: 81 MG, UNK
     Route: 048
  17. COUMADIN [Concomitant]
     Route: 048
  18. HEPARIN [Concomitant]
     Route: 048
  19. XALATAN [Concomitant]
     Route: 047
  20. ALPHAGAN [Concomitant]
     Route: 047
  21. OMNISCAN [Concomitant]
     Dosage: 20 ML, UNK
     Dates: start: 20040926
  22. DIOVAN [Concomitant]
     Dosage: 80 MG, QD
     Route: 048
  23. ALBUTEROL SULFATE AUTOHALER [Concomitant]
  24. ATROVENT [Concomitant]
  25. VANCOMYCIN [Concomitant]
     Dosage: 1 G, UNK
     Route: 042
     Dates: start: 20040927, end: 20040927

REACTIONS (10)
  - INJURY [None]
  - UNEVALUABLE EVENT [None]
  - EMOTIONAL DISTRESS [None]
  - FEAR [None]
  - RENAL IMPAIRMENT [None]
  - RENAL FAILURE [None]
  - STRESS [None]
  - PAIN [None]
  - RENAL INJURY [None]
  - ANXIETY [None]
